FAERS Safety Report 25529849 (Version 2)
Quarter: 2025Q3

REPORT INFORMATION
  Report Type: Spontaneous
  Country: US (occurrence: US)
  Receive Date: 20250708
  Receipt Date: 20250725
  Transmission Date: 20251021
  Serious: Yes (Death, Other)
  Sender: KEDRION
  Company Number: US-KEDRION-010280

PATIENT
  Weight: 1.2 kg

DRUGS (10)
  1. RYPLAZIM [Suspect]
     Active Substance: PLASMINOGEN
     Indication: Plasminogen activator inhibitor type 1 deficiency
     Route: 042
     Dates: start: 20250327, end: 20250327
  2. RYPLAZIM [Suspect]
     Active Substance: PLASMINOGEN
     Indication: Plasminogen activator inhibitor type 1 deficiency
     Route: 042
     Dates: start: 20250331, end: 20250331
  3. RYPLAZIM [Suspect]
     Active Substance: PLASMINOGEN
     Indication: Plasminogen activator inhibitor type 1 deficiency
     Dosage: Q48H AT 8.4 ML/HR OVER 10 MINUTES. 6.6 MG/KG X 1.2 INTRAVENOUS KG (DOSING WEIGHT)
     Route: 042
     Dates: start: 20250402, end: 20250408
  4. RYPLAZIM [Suspect]
     Active Substance: PLASMINOGEN
     Indication: Plasminogen activator inhibitor type 1 deficiency
     Dosage: Q48H AT 10.2 ML/HR OVER 10 MINUTES. 6.6 MG/KG X 1.4 INTRAVENOUS KG (DOSING WEIGHT)
     Route: 042
     Dates: start: 20250408, end: 20250413
  5. RYPLAZIM [Suspect]
     Active Substance: PLASMINOGEN
     Indication: Plasminogen activator inhibitor type 1 deficiency
     Route: 042
     Dates: start: 20250413, end: 20250413
  6. AMPICILLIN [Concomitant]
     Active Substance: AMPICILLIN
     Indication: Infection prophylaxis
     Route: 065
  7. GENTAMICIN [Concomitant]
     Active Substance: GENTAMICIN
     Indication: Infection prophylaxis
     Route: 065
  8. GENTAMICIN [Concomitant]
     Active Substance: GENTAMICIN
     Indication: Infection prophylaxis
     Route: 065
     Dates: start: 20250413
  9. ZOSYN [Concomitant]
     Active Substance: PIPERACILLIN SODIUM\TAZOBACTAM SODIUM
     Indication: Infection prophylaxis
     Route: 065
     Dates: start: 20250413
  10. CAFFEINE [Concomitant]
     Active Substance: CAFFEINE
     Indication: Neonatal respiratory distress syndrome
     Route: 065

REACTIONS (6)
  - Necrotising colitis [Fatal]
  - Hypotension [Unknown]
  - Respiratory acidosis [Unknown]
  - Metabolic acidosis [Unknown]
  - Electrolyte imbalance [Unknown]
  - Haematocrit decreased [Unknown]

NARRATIVE: CASE EVENT DATE: 20250413
